FAERS Safety Report 10235794 (Version 1)
Quarter: 2014Q1

REPORT INFORMATION
  Report Type: Spontaneous
  Country: US (occurrence: None)
  Receive Date: 20140306
  Receipt Date: 20140306
  Transmission Date: 20141002
  Serious: Yes (Other)
  Sender: FDA-Public Use
  Company Number: 163-21880-13024180

PATIENT
  Age: 74 Year
  Sex: Female

DRUGS (1)
  1. REVLIMID [Suspect]
     Indication: PLASMA CELL MYELOMA
     Route: 048
     Dates: start: 20130204

REACTIONS (6)
  - Tinnitus [None]
  - Insomnia [None]
  - Rash [None]
  - Eyelid oedema [None]
  - Pruritus [None]
  - Neuropathy peripheral [None]
